FAERS Safety Report 23274116 (Version 1)
Quarter: 2023Q4

REPORT INFORMATION
  Report Type: Spontaneous
  Country: US (occurrence: US)
  Receive Date: 20231208
  Receipt Date: 20231208
  Transmission Date: 20240110
  Serious: No
  Sender: FDA-Public Use
  Company Number: US-AMGEN-USASP2023217887

PATIENT
  Sex: Male

DRUGS (4)
  1. OTEZLA [Suspect]
     Active Substance: APREMILAST
     Indication: Psoriasis
     Dosage: 30 MILLIGRAM, BID
     Route: 065
     Dates: start: 202104
  2. HYDROCORTISONE [Concomitant]
     Active Substance: HYDROCORTISONE
     Indication: Psoriasis
     Dosage: TWICE DAILY X 2-4 WEEKS, AS NEEDED
  3. DOVONEX [Concomitant]
     Active Substance: CALCIPOTRIENE
     Indication: Psoriasis
     Route: 061
  4. BETAMETHASONE [Concomitant]
     Active Substance: BETAMETHASONE\BETAMETHASONE DIPROPIONATE
     Indication: Psoriasis

REACTIONS (3)
  - Psoriasis [Recovering/Resolving]
  - Back pain [Not Recovered/Not Resolved]
  - Therapeutic product effect decreased [Unknown]
